FAERS Safety Report 11246550 (Version 1)
Quarter: 2015Q3

REPORT INFORMATION
  Report Type: Spontaneous
  Country: US (occurrence: None)
  Receive Date: 20150706
  Receipt Date: 20150706
  Transmission Date: 20151125
  Serious: Yes (Hospitalization)
  Sender: FDA-Public Use
  Company Number: None

PATIENT
  Age: 76 Year
  Sex: Female

DRUGS (5)
  1. TOLTERODINE [Concomitant]
     Active Substance: TOLTERODINE
  2. IBRANCE [Suspect]
     Active Substance: PALBOCICLIB
     Indication: BREAST CANCER
     Route: 048
     Dates: start: 20150601, end: 20150615
  3. ONDANSETRON [Concomitant]
     Active Substance: ONDANSETRON
  4. RAMIPRIL. [Concomitant]
     Active Substance: RAMIPRIL
  5. LETROZOLE. [Concomitant]
     Active Substance: LETROZOLE

REACTIONS (1)
  - Gastritis [None]

NARRATIVE: CASE EVENT DATE: 20150601
